FAERS Safety Report 15500465 (Version 1)
Quarter: 2018Q4

REPORT INFORMATION
  Report Type: Spontaneous
  Country: US (occurrence: US)
  Receive Date: 20181015
  Receipt Date: 20181015
  Transmission Date: 20190205
  Serious: Yes (Life-Threatening)
  Sender: FDA-Public Use
  Company Number: None

PATIENT
  Age: 70 Year
  Sex: Male
  Weight: 67 kg

DRUGS (6)
  1. CABOZANTINIB [Suspect]
     Active Substance: CABOZANTINIB
     Indication: HEPATOCELLULAR CARCINOMA
     Route: 048
     Dates: start: 20180817, end: 20180915
  2. ATORVASTATIN 40 MG [Concomitant]
     Active Substance: ATORVASTATIN
  3. ASPIRIN 81 MG [Concomitant]
     Active Substance: ASPIRIN
  4. LISINOPRIL 2.5 MG [Concomitant]
  5. LOPERAMIDE [Concomitant]
     Active Substance: LOPERAMIDE
  6. IBUPROFEN 200 MG [Concomitant]
     Active Substance: IBUPROFEN

REACTIONS (5)
  - Left ventricular dysfunction [None]
  - Ventricular extrasystoles [None]
  - Electrocardiogram ST-T change [None]
  - Myocardial infarction [None]
  - Left ventricular hypertrophy [None]

NARRATIVE: CASE EVENT DATE: 20180914
